FAERS Safety Report 7875300-3 (Version None)
Quarter: 2011Q4

REPORT INFORMATION
  Report Type: 
  Country: None (occurrence: None)
  Receive Date: 20111031
  Receipt Date: 20111017
  Transmission Date: 20120403
  Serious: Yes (Death, Other)
  Sender: FDA-Public Use
  Company Number: PHHY2011IN91898

PATIENT
  Age: 32 Year
  Sex: Male

DRUGS (2)
  1. NIFEDIPINE [Concomitant]
  2. CYCLOSPORINE [Suspect]
     Indication: APLASTIC ANAEMIA
     Dosage: 10 MG/KG PER DAY FOR SIX MONTHS

REACTIONS (3)
  - DENTAL PLAQUE [None]
  - SEPSIS [None]
  - GINGIVAL HYPERTROPHY [None]
